FAERS Safety Report 22632628 (Version 1)
Quarter: 2023Q2

REPORT INFORMATION
  Report Type: Spontaneous
  Country: JP (occurrence: JP)
  Receive Date: 20230623
  Receipt Date: 20230623
  Transmission Date: 20230722
  Serious: Yes (Hospitalization)
  Sender: FDA-Public Use
  Company Number: JP-NOVOPROD-1079229

PATIENT
  Sex: Male
  Weight: 2.93 kg

DRUGS (10)
  1. NOVORAPID [Suspect]
     Active Substance: INSULIN ASPART
     Dosage: DOSE INCREASED
     Route: 064
  2. NOVORAPID [Suspect]
     Active Substance: INSULIN ASPART
     Indication: Gestational diabetes
     Dosage: 9 IU, QD(3-3-3 UNITS)
     Route: 064
  3. NOVORAPID [Suspect]
     Active Substance: INSULIN ASPART
     Dosage: 4 IU, QD(0-2-2 UNITS)
     Route: 064
  4. NOVORAPID [Suspect]
     Active Substance: INSULIN ASPART
     Indication: Type 1 diabetes mellitus
     Dosage: 51 IU, QD(24-8-9)
     Route: 064
  5. METHIMAZOLE [Concomitant]
     Active Substance: METHIMAZOLE
     Indication: Graves^ disease
     Dosage: 5 MG EVERY 2 DAYS
     Route: 064
  6. LEVEMIR [Suspect]
     Active Substance: INSULIN DETEMIR
     Indication: Gestational diabetes
     Dosage: 3 IU, QD(0-0-0-3 UNITS)
     Route: 064
  7. LEVEMIR [Suspect]
     Active Substance: INSULIN DETEMIR
     Dosage: 2 IU, QD(0-0-0-2)
     Route: 064
  8. LEVEMIR [Suspect]
     Active Substance: INSULIN DETEMIR
     Indication: Type 1 diabetes mellitus
     Dosage: 3 IU, QD(3-0-0 UNITS)
     Route: 064
  9. INSULIN LISPRO [Concomitant]
     Active Substance: INSULIN LISPRO
     Indication: Type 1 diabetes mellitus
     Dosage: 15 IU, QD(4-5-6 UNITS)
     Route: 064
  10. METHIMAZOLE [Concomitant]
     Active Substance: METHIMAZOLE
     Indication: Product used for unknown indication
     Route: 064

REACTIONS (2)
  - Infantile apnoea [Recovering/Resolving]
  - Foetal exposure during pregnancy [Recovered/Resolved]
